FAERS Safety Report 19270783 (Version 1)
Quarter: 2021Q2

REPORT INFORMATION
  Report Type: Other
  Country: MX (occurrence: MX)
  Receive Date: 20210518
  Receipt Date: 20210518
  Transmission Date: 20210717
  Serious: Yes (Hospitalization)
  Sender: FDA-Public Use
  Company Number: MX-B.BRAUN MEDICAL INC.-2110658

PATIENT
  Age: 5 Year
  Sex: Male

DRUGS (6)
  1. ACYCLOVIR. [Concomitant]
     Active Substance: ACYCLOVIR
  2. LIDOCAINE HYDROCHLORIDE AND DEXTROSE [Suspect]
     Active Substance: DEXTROSE\LIDOCAINE HYDROCHLORIDE
     Indication: EPILEPSY
  3. MIDAZOLAM. [Concomitant]
     Active Substance: MIDAZOLAM
  4. METHYLPREDNISOLONE. [Concomitant]
     Active Substance: METHYLPREDNISOLONE
  5. BENZODIAZEPINE [Concomitant]
     Active Substance: BENZODIAZEPINE
  6. PROPOFOL. [Concomitant]
     Active Substance: PROPOFOL

REACTIONS (1)
  - Drug ineffective [None]
